FAERS Safety Report 12885788 (Version 1)
Quarter: 2016Q4

REPORT INFORMATION
  Report Type: Spontaneous
  Country: US (occurrence: US)
  Receive Date: 20161026
  Receipt Date: 20161026
  Transmission Date: 20170207
  Serious: Yes (Life-Threatening, Hospitalization)
  Sender: FDA-Public Use
  Company Number: None

PATIENT
  Age: 91 Year
  Sex: Female

DRUGS (1)
  1. ELIQUIS [Suspect]
     Active Substance: APIXABAN
     Route: 048
     Dates: start: 20160325, end: 20161005

REACTIONS (2)
  - Anal haemorrhage [None]
  - Asthenia [None]

NARRATIVE: CASE EVENT DATE: 20161005
